FAERS Safety Report 5909725-X (Version None)
Quarter: 2008Q4

REPORT INFORMATION
  Report Type: 
  Country: None (occurrence: None)
  Receive Date: 20081007
  Receipt Date: 20080930
  Transmission Date: 20090506
  Serious: Yes (Other)
  Sender: FDA-Public Use
  Company Number: JP-SP-2008-02184

PATIENT
  Age: 68 Year
  Sex: Male

DRUGS (3)
  1. IMMUCYST [Suspect]
     Indication: MALIGNANT NEOPLASM OF RENAL PELVIS
     Dosage: UNKNOWN
     Route: 043
     Dates: start: 20070911, end: 20070911
  2. IMMUCYST [Suspect]
     Dosage: UNKNOWN
     Route: 043
     Dates: start: 20070911, end: 20070911
  3. IMMUCYST [Suspect]
     Dosage: UNKNOWN
     Route: 043
     Dates: start: 20070911, end: 20070911

REACTIONS (5)
  - GRANULOMA [None]
  - LIVER DISORDER [None]
  - OFF LABEL USE [None]
  - PULMONARY GRANULOMA [None]
  - PYREXIA [None]
